FAERS Safety Report 24863872 (Version 1)
Quarter: 2025Q1

REPORT INFORMATION
  Report Type: Spontaneous
  Country: CN (occurrence: CN)
  Receive Date: 20250120
  Receipt Date: 20250120
  Transmission Date: 20250409
  Serious: Yes (Other)
  Sender: NOVARTIS
  Company Number: CN-002147023-NVSC2025CN007397

PATIENT
  Age: 52 Year
  Sex: Male

DRUGS (2)
  1. SACUBITRIL\VALSARTAN [Suspect]
     Active Substance: SACUBITRIL\VALSARTAN
     Indication: Dilated cardiomyopathy
     Route: 065
  2. SACUBITRIL\VALSARTAN [Suspect]
     Active Substance: SACUBITRIL\VALSARTAN
     Indication: Symptomatic treatment

REACTIONS (17)
  - Dilated cardiomyopathy [Unknown]
  - Condition aggravated [Unknown]
  - Chest discomfort [Unknown]
  - Tachypnoea [Unknown]
  - Productive cough [Unknown]
  - Asthenia [Unknown]
  - Oedema peripheral [Unknown]
  - Poor quality sleep [Unknown]
  - Temperature intolerance [Unknown]
  - Hyperhidrosis [Unknown]
  - Decreased appetite [Unknown]
  - Urine output decreased [Unknown]
  - Tongue discolouration [Unknown]
  - Tongue coated [Unknown]
  - Pulse abnormal [Unknown]
  - Varicose veins sublingual [Unknown]
  - Off label use [Unknown]
